FAERS Safety Report 6047517-4 (Version None)
Quarter: 2009Q1

REPORT INFORMATION
  Report Type: 
  Country: None (occurrence: None)
  Receive Date: 20090122
  Receipt Date: 20090116
  Transmission Date: 20090719
  Serious: Yes (Other)
  Sender: FDA-Public Use
  Company Number: US-ELI_LILLY_AND_COMPANY-US200901002734

PATIENT
  Sex: Female
  Weight: 64.853 kg

DRUGS (10)
  1. TERIPARATIDE [Suspect]
     Indication: OSTEOPOROSIS
     Dosage: 20 UG, DAILY (1/D)
     Route: 058
     Dates: start: 20050912, end: 20070911
  2. ASPIRIN [Concomitant]
     Indication: PROPHYLAXIS
  3. ATENOLOL [Concomitant]
     Indication: HEART RATE INCREASED
     Dosage: 25 MG, UNK
  4. CALCIUM WITH VITAMIN D [Concomitant]
     Indication: OSTEOPOROSIS
  5. MULTI-VITAMIN [Concomitant]
     Indication: OSTEOPOROSIS
  6. GLUCOSAMINE [Concomitant]
     Indication: ARTHROPATHY
     Dosage: 1000 UG, UNK
  7. LEVOXYL [Concomitant]
     Indication: HYPOTHYROIDISM
     Dosage: 50 UG, UNK
  8. FOSAMAX [Concomitant]
     Indication: OSTEOPOROSIS
     Dosage: 70 MG, UNK
     Dates: start: 20080616
  9. ASCORBIC ACID [Concomitant]
     Indication: PROPHYLAXIS
     Dosage: 1000 MG, UNK
  10. VITAMIN E [Concomitant]
     Indication: PROPHYLAXIS
     Dosage: 400 U, UNK

REACTIONS (1)
  - BREAST CANCER RECURRENT [None]
